FAERS Safety Report 8380235-6 (Version None)
Quarter: 2012Q2

REPORT INFORMATION
  Report Type: 
  Country: None (occurrence: None)
  Receive Date: 20120523
  Receipt Date: 20120516
  Transmission Date: 20120825
  Serious: Yes (Hospitalization)
  Sender: FDA-Public Use
  Company Number: PHHY2012IL042213

PATIENT
  Age: 12 Year
  Sex: Female

DRUGS (4)
  1. ILARIS [Suspect]
     Indication: BLOOD IMMUNOGLOBULIN D INCREASED
     Dosage: 135 MG EVERY 28 DAYS
     Route: 058
     Dates: start: 20111201, end: 20120418
  2. ILARIS [Suspect]
     Dosage: 135 MG, (SECOND INJECTION)
     Route: 058
  3. ILARIS [Suspect]
     Dosage: 135 MG, (THIRD INJECTION)
     Route: 058
  4. ILARIS [Suspect]
     Dosage: 135 MG, (FOURTH INJECTION)
     Route: 058
     Dates: start: 20120418

REACTIONS (6)
  - OXYGEN SATURATION DECREASED [None]
  - COUGH [None]
  - WHEEZING [None]
  - RHINORRHOEA [None]
  - LUNG INFILTRATION [None]
  - DYSPNOEA [None]
